FAERS Safety Report 12257641 (Version 1)
Quarter: 2016Q2

REPORT INFORMATION
  Report Type: Report from Study
  Country: US (occurrence: US)
  Receive Date: 20160412
  Receipt Date: 20160412
  Transmission Date: 20160815
  Serious: Yes (Hospitalization, Other)
  Sender: FDA-Public Use
  Company Number: US-ABBVIE-16K-163-1599467-00

PATIENT
  Age: 70 Year
  Sex: Male
  Weight: 74.46 kg

DRUGS (1)
  1. HUMIRA [Suspect]
     Active Substance: ADALIMUMAB
     Indication: CROHN^S DISEASE
     Route: 058
     Dates: start: 201506

REACTIONS (11)
  - Intestinal obstruction [Recovered/Resolved]
  - Intestinal obstruction [Unknown]
  - Cough [Unknown]
  - Ileal stenosis [Unknown]
  - Pancreatitis [Unknown]
  - Drug ineffective [Unknown]
  - Injection site pain [Unknown]
  - Diarrhoea [Unknown]
  - Rhinorrhoea [Unknown]
  - Intestinal obstruction [Recovered/Resolved]
  - Abdominal pain [Unknown]

NARRATIVE: CASE EVENT DATE: 2015
